FAERS Safety Report 5812859-1 (Version None)
Quarter: 2008Q3

REPORT INFORMATION
  Report Type: 
  Country: None (occurrence: None)
  Receive Date: 20080714
  Receipt Date: 20080714
  Transmission Date: 20090109
  Serious: Yes (Hospitalization)
  Sender: FDA-Public Use
  Company Number: None

PATIENT
  Age: 61 Year
  Sex: Male
  Weight: 101.2 kg

DRUGS (2)
  1. ARIPIRAZOLE [Suspect]
     Indication: SCHIZOPHRENIA, PARANOID TYPE
     Dosage: 15 MG EVERYDAY PO
     Route: 048
     Dates: start: 20060810, end: 20080709
  2. BENZTROPINE [Suspect]
     Indication: TARDIVE DYSKINESIA
     Dosage: 2 MG BID PO
     Route: 048
     Dates: start: 20080702

REACTIONS (1)
  - ORTHOSTATIC HYPOTENSION [None]
